FAERS Safety Report 10238559 (Version 1)
Quarter: 2014Q2

REPORT INFORMATION
  Report Type: Spontaneous
  Country: CN (occurrence: CN)
  Receive Date: 20140616
  Receipt Date: 20140616
  Transmission Date: 20141212
  Serious: Yes (Other)
  Sender: FDA-Public Use
  Company Number: CN-PFIZER INC-2014162361

PATIENT
  Age: 39 Year
  Sex: Female
  Weight: 62.2 kg

DRUGS (1)
  1. PHARMORUBICIN [Suspect]
     Indication: BREAST CANCER
     Dosage: 110 MG, 1X/DAY
     Route: 041
     Dates: start: 20131127, end: 20131127

REACTIONS (1)
  - Anaphylactic shock [Recovered/Resolved]
